FAERS Safety Report 10408601 (Version 1)
Quarter: 2014Q3

REPORT INFORMATION
  Report Type: Spontaneous
  Country: US (occurrence: None)
  Receive Date: 20140822
  Receipt Date: 20140822
  Transmission Date: 20150326
  Serious: Yes (Other)
  Sender: FDA-Public Use
  Company Number: None

PATIENT
  Age: 51 Year
  Sex: Female
  Weight: 72.58 kg

DRUGS (1)
  1. LUPRON DEPOT [Suspect]
     Active Substance: LEUPROLIDE ACETATE
     Indication: MENORRHAGIA
     Dosage: 1 SHOT  EVERY 3 MONTHS  INTO THE MUSCLE
     Route: 030

REACTIONS (3)
  - Amnesia [None]
  - Insomnia [None]
  - Alopecia [None]

NARRATIVE: CASE EVENT DATE: 20140515
